FAERS Safety Report 26149887 (Version 1)
Quarter: 2025Q4

REPORT INFORMATION
  Report Type: Report from Study
  Country: US (occurrence: US)
  Receive Date: 20251212
  Receipt Date: 20251212
  Transmission Date: 20260119
  Serious: Yes (Other)
  Sender: ALEXION PHARMACEUTICALS
  Company Number: US-AstraZeneca-CH-01010851A

PATIENT
  Sex: Female
  Weight: 53.515 kg

DRUGS (1)
  1. SELUMETINIB [Suspect]
     Active Substance: SELUMETINIB
     Indication: Brain neoplasm malignant
     Dosage: 25 MILLIGRAM, BID

REACTIONS (2)
  - Nephrolithiasis [Unknown]
  - Diarrhoea [Unknown]
